FAERS Safety Report 5021786-1 (Version None)
Quarter: 2006Q2

REPORT INFORMATION
  Report Type: 
  Country: None (occurrence: None)
  Receive Date: 20060605
  Receipt Date: 20060522
  Transmission Date: 20061013
  Serious: Yes (Hospitalization)
  Sender: FDA-Public Use
  Company Number: US-2006-012488

PATIENT
  Age: 61 Year
  Sex: Female

DRUGS (1)
  1. BETASERON [Suspect]
     Indication: MULTIPLE SCLEROSIS
     Dosage: 2 MIU EVERY 2 D, SUBCUTANEOUS
     Route: 058
     Dates: start: 20060515, end: 20060517

REACTIONS (7)
  - BURNING SENSATION [None]
  - CHEST PAIN [None]
  - CHOKING SENSATION [None]
  - DRUG HYPERSENSITIVITY [None]
  - DYSPNOEA [None]
  - MALAISE [None]
  - NEURALGIA [None]
